FAERS Safety Report 8309631-X (Version None)
Quarter: 2012Q2

REPORT INFORMATION
  Report Type: 
  Country: None (occurrence: None)
  Receive Date: 20120423
  Receipt Date: 20120328
  Transmission Date: 20120825
  Serious: Yes (Other)
  Sender: FDA-Public Use
  Company Number: 2012000084

PATIENT
  Age: 80 Year
  Sex: Female

DRUGS (2)
  1. ACEON [Suspect]
     Indication: HYPERTENSION
     Dosage: 2.5 MG, QD, ORAL 5 MG, QD, ORAL
     Route: 048
     Dates: start: 20090101, end: 20110401
  2. ACEON [Suspect]
     Indication: HYPERTENSION
     Dosage: 2.5 MG, QD, ORAL 5 MG, QD, ORAL
     Route: 048
     Dates: start: 20110401, end: 20111113

REACTIONS (3)
  - THYROID NEOPLASM [None]
  - HYPERTHYROIDISM [None]
  - VERTIGO [None]
